FAERS Safety Report 14269581 (Version 1)
Quarter: 2017Q4

REPORT INFORMATION
  Report Type: Spontaneous
  Country: US (occurrence: US)
  Receive Date: 20171211
  Receipt Date: 20171211
  Transmission Date: 20180321
  Serious: Yes (Disabling)
  Sender: FDA-Public Use
  Company Number: US-ABBVIE-17P-163-2178729-00

PATIENT
  Sex: Female

DRUGS (2)
  1. MAVYRET [Suspect]
     Active Substance: GLECAPREVIR\PIBRENTASVIR
     Route: 048
     Dates: start: 201711
  2. MAVYRET [Suspect]
     Active Substance: GLECAPREVIR\PIBRENTASVIR
     Indication: HEPATITIS C
     Route: 048
     Dates: start: 201711, end: 201711

REACTIONS (9)
  - Fatigue [Unknown]
  - Periarthritis [Not Recovered/Not Resolved]
  - Stress [Not Recovered/Not Resolved]
  - Limb injury [Not Recovered/Not Resolved]
  - Impaired work ability [Recovered/Resolved]
  - Emotional distress [Unknown]
  - Weight increased [Unknown]
  - Incorrect dose administered [Recovered/Resolved]
  - Nausea [Recovered/Resolved]

NARRATIVE: CASE EVENT DATE: 201711
